FAERS Safety Report 10086967 (Version 1)
Quarter: 2014Q2

REPORT INFORMATION
  Report Type: Spontaneous
  Country: US (occurrence: US)
  Receive Date: 20140418
  Receipt Date: 20140418
  Transmission Date: 20141212
  Serious: No
  Sender: FDA-Public Use
  Company Number: US-PFIZER INC-2014109064

PATIENT
  Age: 55 Year
  Sex: Male
  Weight: 74.83 kg

DRUGS (1)
  1. RELPAX [Suspect]
     Indication: MIGRAINE
     Dosage: UNK

REACTIONS (2)
  - Drug ineffective [Unknown]
  - Middle insomnia [Unknown]
